FAERS Safety Report 17063188 (Version 1)
Quarter: 2019Q4

REPORT INFORMATION
  Report Type: Spontaneous
  Country: US (occurrence: US)
  Receive Date: 20191122
  Receipt Date: 20191122
  Transmission Date: 20200122
  Serious: Yes (Hospitalization, Other)
  Sender: FDA-Public Use
  Company Number: US-AXELLIA-002805

PATIENT
  Age: 52 Year
  Sex: Female
  Weight: 75 kg

DRUGS (1)
  1. VANCOMYCIN [Suspect]
     Active Substance: VANCOMYCIN
     Indication: BREAST ABSCESS
     Dosage: 1,500 MG (20 MG/KG) ON DAY 1, (FOLLOWED?BY 1,000 MG I.V. EVERY 24 HOURS,) REDUCED TO 750 MG I.V.
     Route: 042

REACTIONS (2)
  - Respiratory failure [Unknown]
  - Treatment failure [Unknown]
